FAERS Safety Report 4714268-5 (Version None)
Quarter: 2005Q2

REPORT INFORMATION
  Report Type: 
  Country: None (occurrence: None)
  Receive Date: 20050630
  Receipt Date: 20041019
  Transmission Date: 20051028
  Serious: Yes (Disabling)
  Sender: FDA-Public Use
  Company Number: 383941

PATIENT
  Age: 38 Year
  Sex: Male

DRUGS (1)
  1. KLONOPIN [Suspect]
     Dosage: ORAL
     Route: 048

REACTIONS (5)
  - DECREASED ACTIVITY [None]
  - DRUG WITHDRAWAL SYNDROME [None]
  - GENERAL PHYSICAL HEALTH DETERIORATION [None]
  - MENTAL DISORDER [None]
  - SUICIDAL IDEATION [None]
